FAERS Safety Report 21490855 (Version 1)
Quarter: 2022Q4

REPORT INFORMATION
  Report Type: Spontaneous
  Country: DE (occurrence: DE)
  Receive Date: 20221021
  Receipt Date: 20221021
  Transmission Date: 20230112
  Serious: Yes (Other)
  Sender: FDA-Public Use
  Company Number: DE-ALKEM LABORATORIES LIMITED-DE-ALKEM-2022-10412

PATIENT
  Sex: Female
  Weight: 68 kg

DRUGS (2)
  1. FINGOLIMOD [Suspect]
     Active Substance: FINGOLIMOD
     Indication: Multiple sclerosis
     Dosage: 0.5 MILLIGRAM, QD (EVERY 1 DAY) CAPSULE, HARD
     Route: 048
     Dates: start: 20181022, end: 20181125
  2. FINGOLIMOD [Suspect]
     Active Substance: FINGOLIMOD
     Dosage: 0.5 MILLIGRAM, QD (EVERY 1 DAY) CAPSULE, HARD
     Route: 048
     Dates: start: 20190117, end: 201902

REACTIONS (2)
  - Lymphopenia [Recovered/Resolved]
  - Lymphopenia [Recovered/Resolved]

NARRATIVE: CASE EVENT DATE: 20181122
